FAERS Safety Report 20855000 (Version 1)
Quarter: 2022Q2

REPORT INFORMATION
  Report Type: Spontaneous
  Country: US (occurrence: None)
  Receive Date: 20220520
  Receipt Date: 20220520
  Transmission Date: 20220720
  Serious: Yes (Life-Threatening)
  Sender: FDA-Public Use
  Company Number: None

PATIENT
  Sex: Female
  Weight: 77.11 kg

DRUGS (18)
  1. IBRANCE [Suspect]
     Active Substance: PALBOCICLIB
     Indication: Breast cancer
     Dosage: 125MG DAILY FOR 3 WKS  ORAL?
     Route: 048
     Dates: start: 201911
  2. LETROZOLE [Concomitant]
     Active Substance: LETROZOLE
  3. GLIPIZIDE [Concomitant]
     Active Substance: GLIPIZIDE
  4. LASIX [Concomitant]
     Active Substance: FUROSEMIDE
  5. DULOXETINE [Concomitant]
     Active Substance: DULOXETINE
  6. TIZANIDINE [Concomitant]
     Active Substance: TIZANIDINE
  7. KLONOPIN [Concomitant]
     Active Substance: CLONAZEPAM
  8. NEURONTIN [Concomitant]
     Active Substance: GABAPENTIN
  9. COZAAR [Concomitant]
     Active Substance: LOSARTAN POTASSIUM
  10. ATORVASTATIN [Concomitant]
     Active Substance: ATORVASTATIN
  11. ASPIRIN [Concomitant]
     Active Substance: ASPIRIN
  12. HUMULIN NOS [Concomitant]
     Active Substance: INSULIN HUMAN
  13. RANITIDINE [Concomitant]
     Active Substance: RANITIDINE
  14. LORAZEPAM [Concomitant]
     Active Substance: LORAZEPAM
  15. NAPROXEN [Concomitant]
     Active Substance: NAPROXEN
  16. LANTUS SOLOSTAR [Concomitant]
     Active Substance: INSULIN GLARGINE
  17. ROSUVASTATIN [Concomitant]
     Active Substance: ROSUVASTATIN
  18. MORPHINE [Concomitant]
     Active Substance: MORPHINE

REACTIONS (2)
  - Fall [None]
  - Therapy interrupted [None]
